FAERS Safety Report 8928990 (Version 4)
Quarter: 2013Q4

REPORT INFORMATION
  Report Type: Report from Study
  Country: GB (occurrence: GB)
  Receive Date: 20121127
  Receipt Date: 20131108
  Transmission Date: 20140711
  Serious: Yes (Congenital Anomaly)
  Sender: FDA-Public Use
  Company Number: GB-MERCK-1211GBR010578

PATIENT
  Sex: Male
  Weight: 4.1 kg

DRUGS (4)
  1. ISENTRESS [Suspect]
     Indication: HIV INFECTION
     Dosage: 400 MG, QD
     Route: 064
     Dates: start: 20120720
  2. PREZISTA [Suspect]
     Dosage: 600 MG, QD
     Route: 064
     Dates: start: 20120807
  3. SELZENTRY [Suspect]
     Dosage: 150 MG, QD
     Route: 064
     Dates: start: 20120720
  4. NORVIR [Suspect]
     Dosage: 100 MG, QD
     Route: 064
     Dates: start: 20040206

REACTIONS (3)
  - Congenital renal disorder [Unknown]
  - Kidney enlargement [Unknown]
  - Foetal exposure during pregnancy [Unknown]
